FAERS Safety Report 16267118 (Version 1)
Quarter: 2019Q2

REPORT INFORMATION
  Report Type: Spontaneous
  Country: US (occurrence: US)
  Receive Date: 20190502
  Receipt Date: 20190502
  Transmission Date: 20190711
  Serious: No
  Sender: FDA-Public Use
  Company Number: US-BAUSCH-BL-2018-016454

PATIENT
  Sex: Female

DRUGS (3)
  1. CLODERM [Suspect]
     Active Substance: CLOCORTOLONE PIVALATE
     Indication: SKIN TEST
     Route: 065
  2. LOTEMAX [Concomitant]
     Active Substance: LOTEPREDNOL ETABONATE
     Indication: PRODUCT USED FOR UNKNOWN INDICATION
     Route: 047
  3. HYDROCORTISONE. [Suspect]
     Active Substance: HYDROCORTISONE
     Indication: SKIN TEST
     Route: 065

REACTIONS (1)
  - Dermatitis contact [Unknown]
